APPROVED DRUG PRODUCT: DESLORATADINE
Active Ingredient: DESLORATADINE
Strength: 0.5MG/ML
Dosage Form/Route: SOLUTION;ORAL
Application: A202936 | Product #001
Applicant: TARO PHARMACEUTICAL INDUSTRIES LTD
Approved: May 26, 2016 | RLD: No | RS: Yes | Type: RX